FAERS Safety Report 7475386-4 (Version None)
Quarter: 2011Q2

REPORT INFORMATION
  Report Type: 
  Country: None (occurrence: None)
  Receive Date: 20110512
  Receipt Date: 20110422
  Transmission Date: 20111010
  Serious: No
  Sender: FDA-Public Use
  Company Number: US-B.I. PHARMACEUTICALS,INC./RIDGEFIELD-2011-BP-07162BP

PATIENT
  Age: 76 Year
  Sex: Female

DRUGS (8)
  1. ASPIRIN [Concomitant]
     Dosage: 162 MG
  2. LISINOPRIL AND HYDROCHLOROTHIAZIDE [Concomitant]
  3. PRADAXA [Suspect]
     Dosage: 300 MG
     Route: 048
     Dates: start: 20110325
  4. CARVEDILOL [Concomitant]
     Dosage: 12.5 MG
  5. PRADAXA [Suspect]
     Dosage: 150 MG
     Route: 048
     Dates: start: 20110301, end: 20110301
  6. MULTI-VITAMIN [Concomitant]
  7. SIMVASTATIN [Concomitant]
     Dosage: 80 MG
  8. PRADAXA [Suspect]
     Indication: ATRIAL FIBRILLATION
     Dosage: 300 MG
     Route: 048
     Dates: start: 20110224, end: 20110225

REACTIONS (5)
  - NAUSEA [None]
  - HEAD DISCOMFORT [None]
  - DIZZINESS [None]
  - HEADACHE [None]
  - BALANCE DISORDER [None]
